FAERS Safety Report 23941332 (Version 1)
Quarter: 2024Q2

REPORT INFORMATION
  Report Type: Spontaneous
  Country: IN (occurrence: IN)
  Receive Date: 20240605
  Receipt Date: 20240605
  Transmission Date: 20240716
  Serious: Yes (Hospitalization, Other)
  Sender: FDA-Public Use
  Company Number: IN-MYLANLABS-2024M1049932

PATIENT
  Age: 56 Year
  Sex: Female

DRUGS (1)
  1. METHOTREXATE [Suspect]
     Active Substance: METHOTREXATE
     Indication: Psoriasis
     Dosage: 30 MILLIGRAM, QW
     Route: 065

REACTIONS (7)
  - Toxicity to various agents [Unknown]
  - Pancytopenia [Unknown]
  - Mucosal inflammation [Unknown]
  - Epistaxis [Unknown]
  - Odynophagia [Unknown]
  - Psoriasis [Unknown]
  - Hypertransaminasaemia [Unknown]
